FAERS Safety Report 8963832 (Version 1)
Quarter: 2012Q4

REPORT INFORMATION
  Report Type: 
  Country: US (occurrence: US)
  Receive Date: 20121214
  Receipt Date: 20121214
  Transmission Date: 20130627
  Serious: No
  Sender: FDA-Public Use
  Company Number: US-009507513-1212USA004076

PATIENT
  Age: 66 Year
  Sex: Female
  Weight: 136.96 kg

DRUGS (1)
  1. ZOCOR [Suspect]
     Dosage: UNK
     Dates: start: 2006, end: 2006

REACTIONS (1)
  - Muscle spasms [Unknown]
